FAERS Safety Report 15324701 (Version 1)
Quarter: 2018Q3

REPORT INFORMATION
  Report Type: Spontaneous
  Country: US (occurrence: US)
  Receive Date: 20180828
  Receipt Date: 20180828
  Transmission Date: 20181010
  Serious: Yes (Hospitalization)
  Sender: FDA-Public Use
  Company Number: US-ACCORD-071026

PATIENT
  Age: 78 Year
  Sex: Female
  Weight: 77.6 kg

DRUGS (4)
  1. EPACADOSTAT [Suspect]
     Active Substance: EPACADOSTAT
     Indication: ENDOMETRIAL ADENOCARCINOMA
     Dosage: DOSE: 100 MG TWO TIMES A DAY
     Route: 048
     Dates: start: 20180702, end: 20180709
  2. CARBOPLATIN. [Suspect]
     Active Substance: CARBOPLATIN
     Indication: ENDOMETRIAL ADENOCARCINOMA
     Dosage: DOSE: AUC 5, Q3 WEEKS
     Route: 042
     Dates: start: 20180702, end: 20180730
  3. FLUOROURACIL. [Suspect]
     Active Substance: FLUOROURACIL
     Indication: ENDOMETRIAL ADENOCARCINOMA
     Dosage: Q3 WEEKS, ON DAYS 1?4
     Route: 042
     Dates: start: 20180702, end: 20180730
  4. PEMBROLIZUMAB. [Suspect]
     Active Substance: PEMBROLIZUMAB
     Indication: ENDOMETRIAL ADENOCARCINOMA
     Dosage: Q3 WEEKS
     Route: 042
     Dates: start: 20180702, end: 20180730

REACTIONS (6)
  - Off label use [Unknown]
  - Stomatitis [Recovered/Resolved]
  - Abdominal pain [Recovered/Resolved]
  - Anaemia [Unknown]
  - Diarrhoea [Recovered/Resolved]
  - Febrile neutropenia [Recovered/Resolved]

NARRATIVE: CASE EVENT DATE: 20180709
